FAERS Safety Report 5912769-5 (Version None)
Quarter: 2008Q4

REPORT INFORMATION
  Report Type: 
  Country: None (occurrence: None)
  Receive Date: 20081008
  Receipt Date: 20080219
  Transmission Date: 20090506
  Serious: No
  Sender: FDA-Public Use
  Company Number: US-ABBOTT-08P-163-0440274-00

PATIENT
  Age: 88 Year

DRUGS (2)
  1. DIVALPROEX SODIUM [Suspect]
     Indication: BEHAVIOURAL AND PSYCHIATRIC SYMPTOMS OF DEMENTIA
  2. DIVALPROEX SODIUM [Suspect]

REACTIONS (3)
  - DECREASED APPETITE [None]
  - GAIT DISTURBANCE [None]
  - SOMNOLENCE [None]
